FAERS Safety Report 10479578 (Version 4)
Quarter: 2014Q4

REPORT INFORMATION
  Report Type: Spontaneous
  Country: GB (occurrence: GB)
  Receive Date: 20140927
  Receipt Date: 20141120
  Transmission Date: 20150528
  Serious: Yes (Death)
  Sender: FDA-Public Use
  Company Number: GB-JNJFOC-20090706739

PATIENT
  Age: 38 Year
  Sex: Male

DRUGS (1)
  1. PARACETAMOL [Suspect]
     Active Substance: ACETAMINOPHEN
     Indication: OVERDOSE
     Route: 048

REACTIONS (10)
  - Sepsis [Not Recovered/Not Resolved]
  - Pneumonia [Fatal]
  - Confusional state [Not Recovered/Not Resolved]
  - Hepatic failure [Fatal]
  - Hostility [Not Recovered/Not Resolved]
  - Periorbital contusion [Not Recovered/Not Resolved]
  - Overdose [Fatal]
  - Intracranial pressure increased [Not Recovered/Not Resolved]
  - Jaundice [Not Recovered/Not Resolved]
  - Death [Fatal]
